FAERS Safety Report 18053131 (Version 6)
Quarter: 2021Q3

REPORT INFORMATION
  Report Type: Other
  Country: CN (occurrence: CN)
  Receive Date: 20200722
  Receipt Date: 20210816
  Transmission Date: 20211014
  Serious: Yes (Other)
  Sender: FDA-Public Use
  Company Number: CN-ROCHE-1733972

PATIENT
  Age: 62 Year
  Sex: Female
  Weight: 57 kg

DRUGS (2)
  1. AVASTIN [Suspect]
     Active Substance: BEVACIZUMAB
     Indication: COLON CANCER
     Route: 041
     Dates: start: 20160607, end: 20210210
  2. AVASTIN [Suspect]
     Active Substance: BEVACIZUMAB
     Indication: ADENOCARCINOMA OF COLON
     Route: 041
     Dates: start: 20151126

REACTIONS (26)
  - Anxiety [Unknown]
  - Cholecystitis [Unknown]
  - Transaminases increased [Unknown]
  - Pain [Unknown]
  - Hypertension [Recovering/Resolving]
  - Skin swelling [Recovering/Resolving]
  - Head injury [Unknown]
  - Cholecystitis [Unknown]
  - Epistaxis [Recovering/Resolving]
  - Depressed mood [Unknown]
  - Abdominal discomfort [Unknown]
  - Memory impairment [Not Recovered/Not Resolved]
  - Cholelithiasis [Unknown]
  - Hypoacusis [Unknown]
  - Insomnia [Unknown]
  - Hepatic function abnormal [Unknown]
  - Haematoma [Recovering/Resolving]
  - Hypertension [Unknown]
  - Chest discomfort [Unknown]
  - Depression [Unknown]
  - Road traffic accident [Unknown]
  - Lividity [Recovering/Resolving]
  - Decreased appetite [Unknown]
  - Asthenia [Unknown]
  - Dizziness [Recovering/Resolving]
  - Spinal disorder [Unknown]

NARRATIVE: CASE EVENT DATE: 2019
